FAERS Safety Report 9096678 (Version 1)
Quarter: 2013Q1

REPORT INFORMATION
  Report Type: Spontaneous
  Country: BR (occurrence: BR)
  Receive Date: 20130211
  Receipt Date: 20130211
  Transmission Date: 20140127
  Serious: Yes (Other)
  Sender: FDA-Public Use
  Company Number: PHHY2013BR012480

PATIENT
  Sex: Female

DRUGS (9)
  1. DIOVAN AMLO FIX [Suspect]
     Indication: HYPERTENSION
     Dosage: 1 DF (VALS 320 MG, AMLO 10 MG), DAILY
     Route: 048
  2. DIOVAN AMLO FIX [Suspect]
     Dosage: 0.5 DF (VALS 320 MG, AMLO 10 MG), DAILY
     Route: 048
  3. DIOVAN AMLO FIX [Suspect]
     Dosage: 1 DF (VALS 160 MG, AMLO 5 MG), DAILY
     Route: 048
  4. INSULIN [Concomitant]
     Indication: DIABETES MELLITUS
     Dosage: 10 UNITS IN THE MORNING AND 20 UNITS AT NIGHT
     Route: 058
  5. ACARBOSE [Concomitant]
     Dosage: 1 DF, DAILY
     Route: 048
  6. PURAN T4 [Concomitant]
     Indication: HYPOTHYROIDISM
     Dosage: 1 DF (25 MG), DAILY
     Route: 048
  7. BONVIVA [Concomitant]
     Indication: OSTEOPOROSIS
     Dosage: 1 DF, EVERY MONTH
     Route: 048
  8. OSCAL D                            /00944201/ [Concomitant]
     Indication: OSTEOPOROSIS
     Route: 048
  9. SIMVASTATIN [Concomitant]
     Indication: BLOOD CHOLESTEROL INCREASED
     Dosage: 1 DF (20 MG), DAILY
     Route: 048

REACTIONS (5)
  - Dementia Alzheimer^s type [Not Recovered/Not Resolved]
  - Hypotension [Recovered/Resolved]
  - Discomfort [Recovered/Resolved]
  - Wrong technique in drug usage process [Unknown]
  - Drug intolerance [Unknown]
